FAERS Safety Report 14419742 (Version 2)
Quarter: 2018Q3

REPORT INFORMATION
  Report Type: Report from Study
  Country: US (occurrence: US)
  Receive Date: 20180122
  Receipt Date: 20180717
  Transmission Date: 20181010
  Serious: No
  Sender: FDA-Public Use
  Company Number: PHEH2018US002381

PATIENT
  Age: 3 Year
  Sex: Female

DRUGS (2)
  1. ILARIS [Suspect]
     Active Substance: CANAKINUMAB
     Indication: PYREXIA
     Dosage: UNK, EVERY 28 DAYS
     Route: 058
  2. ILARIS [Suspect]
     Active Substance: CANAKINUMAB
     Dosage: UNK, EVERY 28 DAYS
     Route: 058
     Dates: start: 20171212

REACTIONS (7)
  - Gait disturbance [Unknown]
  - Facial pain [Unknown]
  - Pyrexia [Not Recovered/Not Resolved]
  - Speech disorder [Unknown]
  - Body temperature increased [Unknown]
  - Urinary tract infection [Unknown]
  - Ear infection [Unknown]

NARRATIVE: CASE EVENT DATE: 20180708
